FAERS Safety Report 4394228-7 (Version None)
Quarter: 2004Q3

REPORT INFORMATION
  Report Type: 
  Country: None (occurrence: None)
  Receive Date: 20040712
  Receipt Date: 20040701
  Transmission Date: 20050211
  Serious: Yes (Other)
  Sender: FDA-Public Use
  Company Number: PHBS2004IL08918

PATIENT
  Age: 35 Year
  Sex: Female

DRUGS (1)
  1. OXYTOCIN [Suspect]

REACTIONS (15)
  - ACTIVATED PARTIAL THROMBOPLASTIN TIME PROLONGED [None]
  - AMNIOTIC FLUID EMBOLUS [None]
  - BLOOD PRESSURE IMMEASURABLE [None]
  - BRADYCARDIA [None]
  - CIRCULATORY COLLAPSE [None]
  - DYSPNOEA [None]
  - FIBRIN D DIMER INCREASED [None]
  - HAEMOGLOBIN DECREASED [None]
  - INTERNATIONAL NORMALISED RATIO INCREASED [None]
  - INTRA-ABDOMINAL HAEMORRHAGE [None]
  - INTRACARDIAC THROMBUS [None]
  - LOSS OF CONSCIOUSNESS [None]
  - OXYGEN SATURATION IMMEASURABLE [None]
  - TACHYCARDIA [None]
  - UTERINE HAEMORRHAGE [None]
